FAERS Safety Report 22655024 (Version 1)
Quarter: 2023Q2

REPORT INFORMATION
  Report Type: Spontaneous
  Country: US (occurrence: None)
  Receive Date: 20230628
  Receipt Date: 20230628
  Transmission Date: 20230721
  Serious: Yes (unspecified)
  Sender: FDA-Public Use
  Company Number: None

PATIENT
  Age: 63 Year
  Sex: Female
  Weight: 76.5 kg

DRUGS (2)
  1. TNKASE [Suspect]
     Active Substance: TENECTEPLASE
     Indication: Cerebrovascular accident
     Dosage: 20 MG  ONCE INTRAVENOUS BOLUS?
     Route: 040
     Dates: start: 20230627, end: 20230627
  2. HUMAN IMMUNOGLOBULIN G [Suspect]
     Active Substance: HUMAN IMMUNOGLOBULIN G

REACTIONS (9)
  - Dizziness [None]
  - Blood pressure increased [None]
  - Angioedema [None]
  - Dysarthria [None]
  - Hypoaesthesia [None]
  - Hemiparesis [None]
  - Somnolence [None]
  - Hemiparesis [None]
  - Sensory disturbance [None]

NARRATIVE: CASE EVENT DATE: 20230627
